FAERS Safety Report 8394432-7 (Version None)
Quarter: 2012Q2

REPORT INFORMATION
  Report Type: 
  Country: None (occurrence: None)
  Receive Date: 20120525
  Receipt Date: 20120525
  Transmission Date: 20120825
  Serious: No
  Sender: FDA-Public Use
  Company Number: None

PATIENT
  Sex: Female

DRUGS (2)
  1. CLOZAPINE [Suspect]
     Dosage: 150MG QAM PO
     Route: 048
     Dates: start: 20111116, end: 20120524
  2. CLOZAPINE [Suspect]
     Dosage: 200MG QHS PO
     Route: 048

REACTIONS (1)
  - ILEUS [None]
